FAERS Safety Report 8978956 (Version 1)
Quarter: 2012Q4

REPORT INFORMATION
  Report Type: Spontaneous
  Country: US (occurrence: None)
  Receive Date: 20121218
  Receipt Date: 20121218
  Transmission Date: 20130627
  Serious: Yes (Hospitalization)
  Sender: FDA-Public Use
  Company Number: None

PATIENT
  Age: 64 Year
  Sex: Male
  Weight: 70.3 kg

DRUGS (1)
  1. CLINDAMYCIN [Suspect]
     Indication: LOWER RESPIRATORY TRACT INFECTION
     Dates: start: 20121015, end: 20121015

REACTIONS (2)
  - Clostridium difficile colitis [None]
  - Prostatomegaly [None]
